FAERS Safety Report 25181344 (Version 1)
Quarter: 2025Q2

REPORT INFORMATION
  Report Type: Spontaneous
  Country: ES (occurrence: ES)
  Receive Date: 20250410
  Receipt Date: 20250410
  Transmission Date: 20250717
  Serious: Yes (Other)
  Sender: TAKEDA
  Company Number: ES-SUN PHARMACEUTICAL INDUSTRIES LTD-2025R1-501078

PATIENT
  Age: 83 Year
  Sex: Male

DRUGS (1)
  1. ANAGRELIDE [Suspect]
     Active Substance: ANAGRELIDE
     Indication: Myeloproliferative neoplasm

REACTIONS (1)
  - Drug tolerance [Unknown]
